FAERS Safety Report 22265880 (Version 1)
Quarter: 2023Q2

REPORT INFORMATION
  Report Type: Spontaneous
  Country: DE (occurrence: DE)
  Receive Date: 20230428
  Receipt Date: 20230428
  Transmission Date: 20230721
  Serious: Yes (Death)
  Sender: FDA-Public Use
  Company Number: DE-TEVA-2023-DE-2880433

PATIENT

DRUGS (7)
  1. BORTEZOMIB [Suspect]
     Active Substance: BORTEZOMIB
     Indication: Plasma cell myeloma refractory
     Dosage: AS A PART OF VTD-PACE REGIMEN; SC BORTEZOMIB AT A DOSE OF 1MG/M 2 BODY SURFACE AREA (BSA) ON DAYS 1,
     Route: 058
  2. DEXAMETHASONE [Suspect]
     Active Substance: DEXAMETHASONE
     Indication: Plasma cell myeloma refractory
     Dosage: AS A PART OF VTD-PACE REGIMEN; ORAL DEXAMETHASONE 40MG ON DAYS 1, 2, 3 AND 4
     Route: 048
  3. CISPLATIN [Suspect]
     Active Substance: CISPLATIN
     Indication: Plasma cell myeloma refractory
     Dosage: 10 MG/M2 DAILY; AS A PART OF VTD-PACE REGIMEN; CONTINUOUS IV INFUSIONS FROM DAY 1-4, WHICH CONSISTED
     Route: 041
  4. DOXORUBICIN [Suspect]
     Active Substance: DOXORUBICIN
     Indication: Plasma cell myeloma refractory
     Dosage: 10 MG/M2 DAILY; AS A PART OF VTD-PACE REGIMEN ; CONTINUOUS IV INFUSIONS FROM DAY 1-4, WHICH CONSISTE
     Route: 041
  5. ETOPOSIDE [Suspect]
     Active Substance: ETOPOSIDE
     Indication: Plasma cell myeloma refractory
     Dosage: 40 MG/M2 DAILY; AS A PART OF VTD-PACE REGIMEN; CONTINUOUS IV INFUSIONS FROM DAY 1-4, WHICH CONSISTED
     Route: 041
  6. CYCLOPHOSPHAMIDE [Suspect]
     Active Substance: CYCLOPHOSPHAMIDE
     Indication: Plasma cell myeloma refractory
     Dosage: 400 MG/M2 DAILY; AS A PART OF VTD-PACE REGIMEN; IV INFUSIONS FROM DAY 1-4, WHICH CONSISTED OF CYCLOP
     Route: 041
  7. THALIDOMIDE [Suspect]
     Active Substance: THALIDOMIDE
     Indication: Plasma cell myeloma refractory
     Dosage: 200 MILLIGRAM DAILY; AS A PART OF VTD-PACE REGIMEN ; ORAL THALIDOMIDE 200MG ONCE A DAY THROUGH OUT T
     Route: 048

REACTIONS (1)
  - COVID-19 [Fatal]
